FAERS Safety Report 4476681-3 (Version None)
Quarter: 2004Q4

REPORT INFORMATION
  Report Type: 
  Country: None (occurrence: None)
  Receive Date: 20041015
  Receipt Date: 20041015
  Transmission Date: 20050328
  Serious: Yes (Life-Threatening)
  Sender: FDA-Public Use
  Company Number: None

PATIENT
  Age: 68 Year
  Sex: Male
  Weight: 125 kg

DRUGS (4)
  1. VORICONAZOLE [Suspect]
     Indication: ABDOMINAL ABSCESS
     Dosage: 800 MG EVERY 12 HOURS INTRAVENOUS
     Route: 042
     Dates: start: 20040309, end: 20040311
  2. VORICONAZOLE [Suspect]
     Indication: CANDIDIASIS
     Dosage: 800 MG EVERY 12 HOURS INTRAVENOUS
     Route: 042
     Dates: start: 20040309, end: 20040311
  3. VANCOMYCIN [Concomitant]
  4. LEVAQUIN [Concomitant]

REACTIONS (9)
  - DIABETES MELLITUS NON-INSULIN-DEPENDENT [None]
  - DIALYSIS [None]
  - ENTEROCOCCAL INFECTION [None]
  - MULTI-ORGAN DISORDER [None]
  - RENAL FAILURE ACUTE [None]
  - SEPTIC SHOCK [None]
  - STAPHYLOCOCCAL INFECTION [None]
  - STAPHYLOCOCCAL SEPSIS [None]
  - SYSTEMIC INFLAMMATORY RESPONSE SYNDROME [None]
